FAERS Safety Report 12668137 (Version 1)
Quarter: 2016Q3

REPORT INFORMATION
  Report Type: Spontaneous
  Country: FR (occurrence: FR)
  Receive Date: 20160819
  Receipt Date: 20160819
  Transmission Date: 20161109
  Serious: Yes (Other)
  Sender: FDA-Public Use
  Company Number: FR-WARNER CHILCOTT, LLC-1056527

PATIENT
  Age: 74 Year
  Sex: Female

DRUGS (9)
  1. ACTONEL [Suspect]
     Active Substance: RISEDRONATE SODIUM
     Indication: OSTEOPOROSIS
     Route: 048
     Dates: end: 201507
  2. RAMIPRIL. [Concomitant]
     Active Substance: RAMIPRIL
  3. ANTIHISTAMINES [Concomitant]
     Active Substance: ANTIHISTAMINES NOS
  4. CACIT D3 (CALCIUM CARBONATE, COLECALCIFEROL) [Concomitant]
  5. ZOLPIDEM [Concomitant]
     Active Substance: ZOLPIDEM\ZOLPIDEM TARTRATE
  6. NIFUROXAZIDE [Concomitant]
     Active Substance: NIFUROXAZIDE
  7. NORMACOL (STERCULIA URENS GUM) [Concomitant]
  8. LEVOTHYROXINE SODIUM. [Concomitant]
     Active Substance: LEVOTHYROXINE SODIUM
  9. VITAMIN D [Concomitant]
     Active Substance: CHOLECALCIFEROL

REACTIONS (1)
  - Breast cancer [Unknown]
